FAERS Safety Report 4414166-0 (Version None)
Quarter: 2004Q3

REPORT INFORMATION
  Report Type: 
  Country: None (occurrence: None)
  Receive Date: 20040728
  Receipt Date: 20040715
  Transmission Date: 20050211
  Serious: Yes (Hospitalization)
  Sender: FDA-Public Use
  Company Number: F01200400946

PATIENT
  Age: 52 Year
  Sex: Female

DRUGS (12)
  1. (OXALIPLATIN) - SOLUTION - 85 MG/ M2 [Suspect]
     Indication: COLORECTAL CANCER
     Dosage: 85 MG/M2 Q2W
     Route: 042
     Dates: start: 20040419, end: 20040419
  2. FLUOROURACIL [Suspect]
     Dosage: 500 MG/M2 BOLUS ON D1, D8 AND D15, Q4W
     Route: 040
     Dates: start: 20040419, end: 20040419
  3. LEUCOVORIN CALCIUM [Suspect]
     Dosage: 20 MG/M2 ON D1, D8 AND D15, Q4W
     Route: 040
     Dates: start: 20040419, end: 20040419
  4. AVASTIN [Suspect]
     Dosage: 5 MG/KG OVER 30-90 MINUTES IV INFUSION ON DAY 1 AND DAY 15, Q4W
     Route: 042
     Dates: start: 20040419, end: 20040419
  5. TOPROL-XL [Concomitant]
  6. LISINOPRIL [Concomitant]
  7. DIFENOXIN HYDROCHLORIDE WITH ATROPINE SULFATE [Concomitant]
  8. OCTREOTIDE ACETATE [Concomitant]
  9. HYDROCODONE BITARTRATE + ACETAMINOPHEN [Concomitant]
  10. FAMOTIDINE [Concomitant]
  11. EMEND [Concomitant]
  12. LORAZEPAM [Concomitant]

REACTIONS (3)
  - CLOSTRIDIUM COLITIS [None]
  - DISEASE PROGRESSION [None]
  - PNEUMATOSIS CYSTOIDES INTESTINALIS [None]
